FAERS Safety Report 9192702 (Version 2)
Quarter: 2013Q2

REPORT INFORMATION
  Report Type: Spontaneous
  Country: US (occurrence: None)
  Receive Date: 20120703
  Receipt Date: 20121031
  Transmission Date: 20140414
  Serious: Yes (Other)
  Sender: FDA-Public Use
  Company Number: PHEH2012US010807

PATIENT
  Age: 49 Year
  Sex: Female
  Weight: 92.8 kg

DRUGS (1)
  1. GILENYA [Suspect]
     Indication: MULTIPLE SCLEROSIS
     Route: 048
     Dates: start: 20120223, end: 20120525

REACTIONS (2)
  - Macular oedema [None]
  - Visual impairment [None]
